FAERS Safety Report 10677897 (Version 2)
Quarter: 2015Q1

REPORT INFORMATION
  Report Type: Spontaneous
  Country: US (occurrence: None)
  Receive Date: 20141223
  Receipt Date: 20150225
  Transmission Date: 20150720
  Serious: Yes (Other)
  Sender: FDA-Public Use
  Company Number: 2014047374

PATIENT
  Age: 21 Year
  Sex: Male

DRUGS (2)
  1. STIMATE [Suspect]
     Active Substance: DESMOPRESSIN ACETATE
     Indication: FACTOR VIII DEFICIENCY
     Dosage: 1 SPRAY EACH NOSTRIL NASAL
     Route: 045
  2. STIMATE [Suspect]
     Active Substance: DESMOPRESSIN ACETATE
     Indication: PAIN
     Dosage: 1 SPRAY EACH NOSTRIL NASAL
     Route: 045

REACTIONS (2)
  - Haemorrhage [None]
  - Product use issue [None]
